FAERS Safety Report 6690357-3 (Version None)
Quarter: 2010Q2

REPORT INFORMATION
  Report Type: 
  Country: None (occurrence: None)
  Receive Date: 20100414
  Receipt Date: 20090305
  Transmission Date: 20101027
  Serious: Yes (Other)
  Sender: FDA-Public Use
  Company Number: 09-078

PATIENT
  Age: 75 Year
  Sex: Female

DRUGS (5)
  1. ALEVE [Suspect]
     Indication: BURSITIS
     Dosage: 880 MG, DAILY, ORAL
     Route: 048
     Dates: start: 20090206, end: 20090206
  2. ALEVE [Suspect]
     Indication: BURSITIS
     Dosage: 880 MG, DAILY, ORAL
     Route: 048
     Dates: start: 20090207, end: 20090209
  3. EFFEXOR [Concomitant]
  4. TYLENOL (CAPLET) [Concomitant]
  5. CORTISONE [Concomitant]

REACTIONS (2)
  - ABDOMINAL PAIN UPPER [None]
  - RECTAL HAEMORRHAGE [None]
